FAERS Safety Report 8188230-7 (Version None)
Quarter: 2012Q1

REPORT INFORMATION
  Report Type: 
  Country: None (occurrence: None)
  Receive Date: 20120306
  Receipt Date: 20120227
  Transmission Date: 20120608
  Serious: Yes (Other)
  Sender: FDA-Public Use
  Company Number: US-ROCHE-1019499

PATIENT
  Sex: Female
  Weight: 65.83 kg

DRUGS (1)
  1. ACCUTANE [Suspect]
     Indication: ACNE
     Dates: start: 19950701, end: 19951209

REACTIONS (6)
  - CROHN'S DISEASE [None]
  - LIP DRY [None]
  - INJURY [None]
  - DEPRESSION [None]
  - BACK PAIN [None]
  - DYSPNOEA [None]
